FAERS Safety Report 9297034 (Version 1)
Quarter: 2013Q2

REPORT INFORMATION
  Report Type: Spontaneous
  Country: US (occurrence: US)
  Receive Date: 20130519
  Receipt Date: 20130519
  Transmission Date: 20140414
  Serious: No
  Sender: FDA-Public Use
  Company Number: US-ALLERGAN-1218256US

PATIENT
  Age: 48 Year
  Sex: Female

DRUGS (4)
  1. LASTACAFT [Suspect]
     Indication: CONJUNCTIVITIS ALLERGIC
     Dosage: 2 GTT, QD
     Route: 047
     Dates: start: 20120818, end: 20120821
  2. OXYBUTYN [Concomitant]
     Indication: HYPERTONIC BLADDER
     Dosage: UNK UNK, QD
     Route: 048
  3. LOESTRIN [Concomitant]
     Indication: PREMENSTRUAL SYNDROME
     Dosage: UNK UNK, QD
     Route: 048
  4. PREVACID [Concomitant]
     Indication: GASTROOESOPHAGEAL REFLUX DISEASE
     Dosage: UNK UNK, PRN
     Route: 048

REACTIONS (1)
  - Eye swelling [Recovered/Resolved]
